FAERS Safety Report 5937885-3 (Version None)
Quarter: 2008Q4

REPORT INFORMATION
  Report Type: 
  Country: None (occurrence: None)
  Receive Date: 20081031
  Receipt Date: 20081021
  Transmission Date: 20090506
  Serious: Yes (Hospitalization)
  Sender: FDA-Public Use
  Company Number: US-PFIZER INC-2008088986

PATIENT
  Sex: Female

DRUGS (1)
  1. CHANTIX [Suspect]

REACTIONS (5)
  - ARTERIAL OCCLUSIVE DISEASE [None]
  - CONSTIPATION [None]
  - INSOMNIA [None]
  - STRESS [None]
  - VOMITING [None]
